FAERS Safety Report 6496512-X (Version None)
Quarter: 2009Q4

REPORT INFORMATION
  Report Type: 
  Country: None (occurrence: None)
  Receive Date: 20091214
  Receipt Date: 20091211
  Transmission Date: 20100525
  Serious: Yes (Other)
  Sender: FDA-Public Use
  Company Number: BE-WYE-G05136609

PATIENT

DRUGS (1)
  1. TYGACIL [Suspect]

REACTIONS (1)
  - HEPATIC CIRRHOSIS [None]
